FAERS Safety Report 22045145 (Version 1)
Quarter: 2023Q1

REPORT INFORMATION
  Report Type: Spontaneous
  Country: BE (occurrence: BE)
  Receive Date: 20230228
  Receipt Date: 20230228
  Transmission Date: 20230418
  Serious: Yes (Hospitalization, Other)
  Sender: FDA-Public Use
  Company Number: BE-PFIZER INC-202300081050

PATIENT
  Age: 49 Year
  Sex: Male

DRUGS (2)
  1. ZIRABEV [Suspect]
     Active Substance: BEVACIZUMAB-BVZR
     Indication: Brain neoplasm
     Dosage: 800 MG
     Dates: start: 2022
  2. CARBOPLATIN [Suspect]
     Active Substance: CARBOPLATIN
     Indication: Brain neoplasm
     Dosage: UNK

REACTIONS (2)
  - Appendicitis perforated [Unknown]
  - Off label use [Unknown]

NARRATIVE: CASE EVENT DATE: 20230215
